FAERS Safety Report 9684579 (Version 1)
Quarter: 2013Q4

REPORT INFORMATION
  Report Type: Spontaneous
  Country: US (occurrence: US)
  Receive Date: 20131112
  Receipt Date: 20131112
  Transmission Date: 20140711
  Serious: No
  Sender: FDA-Public Use
  Company Number: US-AMGEN-USASP2013064279

PATIENT
  Age: 76 Year
  Sex: Female

DRUGS (18)
  1. ARANESP [Suspect]
     Indication: ANAEMIA
     Dosage: UNK
     Route: 065
     Dates: start: 20130910
  2. VITAMIN B12                        /00056201/ [Concomitant]
  3. ALPRAZOLAM [Concomitant]
  4. CARVEDILOL [Concomitant]
  5. CITALOPRAM [Concomitant]
  6. FUROSEMIDE [Concomitant]
  7. INSULIN [Concomitant]
  8. LEVOTHYROXINE [Concomitant]
  9. LOSARTAN [Concomitant]
  10. HYDROCHLOROTHIAZIDE [Concomitant]
  11. METFORMIN [Concomitant]
  12. NIFEDIPINE [Concomitant]
  13. POLYETHYLENE GLYCOL [Concomitant]
  14. PRIMIDONE [Concomitant]
  15. SIMVASTATIN [Concomitant]
  16. SODIUM BICARBONATE [Concomitant]
  17. MULTIVITAMIN                       /00097801/ [Concomitant]
  18. CINNAMON                           /01647501/ [Concomitant]

REACTIONS (1)
  - Diarrhoea [Unknown]
